FAERS Safety Report 7655009-1 (Version None)
Quarter: 2011Q3

REPORT INFORMATION
  Report Type: 
  Country: None (occurrence: None)
  Receive Date: 20110804
  Receipt Date: 20110720
  Transmission Date: 20111222
  Serious: No
  Sender: FDA-Public Use
  Company Number: US-B.I. PHARMACEUTICALS,INC./RIDGEFIELD-2011-BP-18178BP

PATIENT
  Sex: Male

DRUGS (4)
  1. ZANTAC [Concomitant]
     Indication: HIATUS HERNIA
     Dates: start: 20050101
  2. ASPIRIN [Concomitant]
     Indication: ROUTINE HEALTH MAINTENANCE
  3. BETA PROSTATE [Concomitant]
     Indication: ROUTINE HEALTH MAINTENANCE
     Dates: start: 20090101
  4. SPIRIVA [Suspect]
     Indication: CHRONIC OBSTRUCTIVE PULMONARY DISEASE
     Dosage: 18 MCG
     Route: 055
     Dates: start: 20110706

REACTIONS (1)
  - CHROMATURIA [None]
